FAERS Safety Report 4687994-4 (Version None)
Quarter: 2005Q2

REPORT INFORMATION
  Report Type: 
  Country: None (occurrence: None)
  Receive Date: 20050608
  Receipt Date: 20050524
  Transmission Date: 20051028
  Serious: Yes (Hospitalization)
  Sender: FDA-Public Use
  Company Number: 214331

PATIENT
  Age: 36 Year
  Sex: Female

DRUGS (3)
  1. BEVACIZUMAB (BEVACIZUMAB) PWDR + SOLVENT,INFUSION SOLN, 100MG [Suspect]
     Indication: COLORECTAL CANCER
     Dosage: 5 MG/KG,  Q2WL INTRAVENOUS (SEE IMAGE)
     Route: 042
     Dates: start: 20050303, end: 20050303
  2. BEVACIZUMAB (BEVACIZUMAB) PWDR + SOLVENT,INFUSION SOLN, 100MG [Suspect]
     Indication: COLORECTAL CANCER
     Dosage: 5 MG/KG,  Q2WL INTRAVENOUS (SEE IMAGE)
     Route: 042
     Dates: start: 20050303, end: 20050317
  3. CETUXIMAB (CETUXIMAB) [Suspect]
     Indication: COLORECTAL CANCER
     Dosage: 250 MG/M2, WEEK; INTRAVENOUS
     Route: 042
     Dates: start: 20050310, end: 20050331

REACTIONS (20)
  - ABDOMINAL DISTENSION [None]
  - ABDOMINAL MASS [None]
  - ATELECTASIS [None]
  - BACK PAIN [None]
  - BACTERIA BLOOD IDENTIFIED [None]
  - DEEP VEIN THROMBOSIS [None]
  - DEHYDRATION [None]
  - DIZZINESS [None]
  - GASTRIC OUTLET OBSTRUCTION [None]
  - HAEMOGLOBIN DECREASED [None]
  - HEART RATE INCREASED [None]
  - LIVER TENDERNESS [None]
  - MALIGNANT NEOPLASM PROGRESSION [None]
  - METASTASES TO PERITONEUM [None]
  - PAIN IN EXTREMITY [None]
  - PLEURAL EFFUSION [None]
  - PROTEINURIA [None]
  - RESPIRATORY FAILURE [None]
  - STAPHYLOCOCCAL INFECTION [None]
  - VOMITING [None]
